FAERS Safety Report 8503655-5 (Version None)
Quarter: 2012Q3

REPORT INFORMATION
  Report Type: 
  Country: None (occurrence: None)
  Receive Date: 20120711
  Receipt Date: 20120601
  Transmission Date: 20120928
  Serious: Yes (Other)
  Sender: FDA-Public Use
  Company Number: US-JNJCP-30000110128

PATIENT
  Sex: Female

DRUGS (1)
  1. NEUTROGENAA? PRODUCTS [Suspect]
     Route: 061

REACTIONS (2)
  - MALIGNANT MELANOMA [None]
  - DRUG INEFFECTIVE [None]
